FAERS Safety Report 13951757 (Version 1)
Quarter: 2017Q3

REPORT INFORMATION
  Report Type: Spontaneous
  Country: GB (occurrence: GB)
  Receive Date: 20170908
  Receipt Date: 20170908
  Transmission Date: 20171128
  Serious: Yes (Life-Threatening, Hospitalization, Other)
  Sender: FDA-Public Use
  Company Number: GB-TEVA-801866ACC

PATIENT
  Age: 91 Year
  Sex: Male

DRUGS (19)
  1. CO-AMOXICLAV [Suspect]
     Active Substance: AMOXICILLIN\CLAVULANIC ACID
     Indication: URINARY TRACT INFECTION
     Dosage: 1875 MILLIGRAM DAILY;
     Route: 048
     Dates: start: 20170810, end: 20170816
  2. BIMATOPROST. [Concomitant]
     Active Substance: BIMATOPROST
     Dosage: 1 DOSAGE FORMS DAILY; BOTH EYES, AT NIGHT, 0.1MG/ML
  3. NEBIVOLOL. [Concomitant]
     Active Substance: NEBIVOLOL
  4. PARACETAMOL [Concomitant]
     Active Substance: ACETAMINOPHEN
     Dosage: 4 GRAM DAILY;
  5. WARFARIN [Concomitant]
     Active Substance: WARFARIN
     Indication: ATRIAL FIBRILLATION
     Dosage: 2 MILLIGRAM DAILY;
     Dates: start: 201702
  6. PERINDOPRIL ERBUMINE. [Concomitant]
     Active Substance: PERINDOPRIL ERBUMINE
     Dosage: 2 MILLIGRAM DAILY;
     Dates: start: 201708
  7. CILOSTAZOL. [Concomitant]
     Active Substance: CILOSTAZOL
     Dosage: STOPPED DUE TO CHRONIC HEART FAILURE
     Dates: end: 201707
  8. CLOTRIMAZOL [Concomitant]
     Active Substance: CLOTRIMAZOLE
     Indication: CATHETER SITE PAIN
     Dosage: APPLIED
  9. FUROSEMIDE. [Concomitant]
     Active Substance: FUROSEMIDE
     Dosage: 160 MILLIGRAM DAILY;
  10. VERAPAMIL HYDROCHLORIDE. [Concomitant]
     Active Substance: VERAPAMIL HYDROCHLORIDE
     Dosage: STOPPED DUE TO CHRONIC HEART FAILURE
     Dates: end: 201707
  11. AMOXICILLIN. [Concomitant]
     Active Substance: AMOXICILLIN
  12. CODEINE [Concomitant]
     Active Substance: CODEINE
     Dosage: 15-20MG FOUR TIMES A DAY, PATIENT REPORTS NOT USING REGULARLY, AND NOT USING CURRENTLY
  13. DOXAZOSIN MESILATE [Concomitant]
     Active Substance: DOXAZOSIN MESYLATE
     Dosage: STOPPED DUE TO CHRONIC HEART FAILURE
     Dates: end: 201707
  14. FERROUS SULFATE. [Concomitant]
     Active Substance: FERROUS SULFATE
     Dosage: 200 MILLIGRAM DAILY;
  15. TAMSULOSIN [Concomitant]
     Active Substance: TAMSULOSIN
     Dosage: 400 MICROGRAM DAILY;
  16. TRAMADOL HYDROCHLORIDE. [Concomitant]
     Active Substance: TRAMADOL HYDROCHLORIDE
  17. GLYCERYL TRINITRATE [Concomitant]
     Active Substance: NITROGLYCERIN
  18. DORZOLAMIDE HYDROCHLORIDE. [Concomitant]
     Active Substance: DORZOLAMIDE HYDROCHLORIDE
     Dosage: 2 DOSAGE FORMS DAILY;
  19. ISOSORBIDE MONONITRATE. [Concomitant]
     Active Substance: ISOSORBIDE MONONITRATE
     Dosage: 25 MILLIGRAM DAILY;

REACTIONS (3)
  - Drug monitoring procedure not performed [Unknown]
  - Cerebrovascular accident [Unknown]
  - International normalised ratio decreased [Recovered/Resolved]

NARRATIVE: CASE EVENT DATE: 20170815
